FAERS Safety Report 13227293 (Version 3)
Quarter: 2017Q1

REPORT INFORMATION
  Report Type: Spontaneous
  Country: TR (occurrence: TR)
  Receive Date: 20170213
  Receipt Date: 20170314
  Transmission Date: 20170428
  Serious: Yes (Hospitalization)
  Sender: FDA-Public Use
  Company Number: TR-BAXTER-2017BAX005229

PATIENT
  Age: 6 Month
  Sex: Male

DRUGS (6)
  1. ZINCO [Concomitant]
     Indication: PRODUCT USED FOR UNKNOWN INDICATION
     Dosage: 1 CC
     Route: 065
  2. NORVASC [Concomitant]
     Active Substance: AMLODIPINE BESYLATE
     Indication: HYPERTENSION
     Route: 065
  3. IZOTONIK SODYUM KLOR?R PVC [Suspect]
     Active Substance: SODIUM CHLORIDE
     Indication: BLOOD SODIUM DECREASED
     Dosage: EACH TIME 4 CC
     Route: 065
  4. ANTI-POTASIUM GRANULE [Concomitant]
     Indication: BLOOD POTASSIUM INCREASED
     Dosage: EACH TIME A HALF BAG
     Route: 065
  5. SUPRAX [Concomitant]
     Active Substance: CEFIXIME
     Indication: PRODUCT USED FOR UNKNOWN INDICATION
     Route: 065
  6. PHYSIONEAL 40 %1.36 CLEARFLEX PERITON DIYALIZ ??ZELTISI [Suspect]
     Active Substance: CALCIUM CHLORIDE\DEXTROSE MONOHYDRATE\MAGNESIUM CHLORIDE\SODIUM BICARBONATE\SODIUM CHLORIDE\SODIUM LACTATE
     Indication: PERITONEAL DIALYSIS
     Route: 033
     Dates: start: 2016

REACTIONS (5)
  - Peritonitis [Recovered/Resolved]
  - Swelling [Unknown]
  - Peritonitis [Unknown]
  - Peritoneal dialysis complication [Unknown]
  - Constipation [Recovered/Resolved]

NARRATIVE: CASE EVENT DATE: 20170130
